FAERS Safety Report 9279984 (Version 2)
Quarter: 2013Q3

REPORT INFORMATION
  Report Type: Spontaneous
  Country: FR (occurrence: FR)
  Receive Date: 20130509
  Receipt Date: 20130813
  Transmission Date: 20140515
  Serious: Yes (Other)
  Sender: FDA-Public Use
  Company Number: FR-ROCHE-1222814

PATIENT
  Age: 72 Year
  Sex: Female

DRUGS (3)
  1. LUCENTIS [Suspect]
     Indication: AGE-RELATED MACULAR DEGENERATION
     Route: 050
     Dates: start: 201209
  2. LUCENTIS [Suspect]
     Route: 050
     Dates: start: 20130410
  3. REVLIMID [Concomitant]
     Route: 065
     Dates: start: 2010

REACTIONS (1)
  - Eye haemorrhage [Recovered/Resolved]
